FAERS Safety Report 5592738-8 (Version None)
Quarter: 2007Q4

REPORT INFORMATION
  Report Type: 
  Country: None (occurrence: None)
  Receive Date: 20071217
  Receipt Date: 20071011
  Transmission Date: 20080405
  Serious: No
  Sender: FDA-Public Use
  Company Number: BDI-010341

PATIENT
  Age: 59 Year
  Sex: Male

DRUGS (2)
  1. MULTIHANCE [Suspect]
     Indication: DEAFNESS
     Dosage: IV
     Route: 042
     Dates: start: 20071009, end: 20071009
  2. MULTIHANCE [Suspect]
     Indication: NUCLEAR MAGNETIC RESONANCE IMAGING
     Dosage: IV
     Route: 042
     Dates: start: 20071009, end: 20071009

REACTIONS (3)
  - CHEST DISCOMFORT [None]
  - PRURITUS [None]
  - VOMITING [None]
